FAERS Safety Report 7369230-3 (Version None)
Quarter: 2011Q1

REPORT INFORMATION
  Report Type: 
  Country: None (occurrence: None)
  Receive Date: 20110323
  Receipt Date: 20110310
  Transmission Date: 20110831
  Serious: Yes (Hospitalization)
  Sender: FDA-Public Use
  Company Number: CH-CELGENEUS-151-21880-11031197

PATIENT
  Age: 74 Year
  Sex: Male
  Weight: 80 kg

DRUGS (11)
  1. DEXAMETHASONE [Concomitant]
     Route: 048
     Dates: start: 20110203
  2. ROCALTROL [Concomitant]
     Dosage: .125 MICROGRAM
     Route: 065
  3. PRADIF [Concomitant]
     Dosage: 400 MILLIGRAM
     Route: 065
  4. PHYSIOTENS [Concomitant]
     Dosage: .4 MILLIGRAM
     Route: 065
  5. PARACETAMOL [Concomitant]
     Dosage: 3 GRAM
     Route: 065
  6. ADALAT [Concomitant]
     Dosage: 60 MILLIGRAM
     Route: 048
  7. ZESTRIL [Concomitant]
     Dosage: 20 MILLIGRAM
     Route: 065
  8. NEPHROTRANS [Concomitant]
     Dosage: 500 MILLIGRAM
     Route: 065
  9. REVLIMID [Suspect]
     Indication: MULTIPLE MYELOMA
     Route: 048
     Dates: start: 20110203, end: 20110220
  10. REVLIMID [Suspect]
     Dosage: 15 MILLIGRAM
     Route: 048
     Dates: start: 20110101
  11. ASPIRIN [Concomitant]
     Dosage: 100 MILLIGRAM
     Route: 065

REACTIONS (7)
  - NEUTROPENIA [None]
  - HYPERKALAEMIA [None]
  - ANAEMIA [None]
  - HYPOTENSION [None]
  - BRADYCARDIA [None]
  - RENAL FAILURE ACUTE [None]
  - THROMBOCYTOPENIA [None]
